FAERS Safety Report 5356645-8 (Version None)
Quarter: 2007Q2

REPORT INFORMATION
  Report Type: 
  Country: None (occurrence: None)
  Receive Date: 20070614
  Receipt Date: 20070604
  Transmission Date: 20071010
  Serious: Yes (Hospitalization)
  Sender: FDA-Public Use
  Company Number: DE-BAXTER-2007BH004844

PATIENT
  Age: 50 Year
  Sex: Male
  Weight: 75 kg

DRUGS (20)
  1. EXTRANEAL [Suspect]
     Indication: PERITONEAL DIALYSIS
     Route: 033
     Dates: start: 20020201
  2. EXTRANEAL [Suspect]
     Route: 033
     Dates: start: 20020411
  3. PHYSIOSOL IN PLASTIC CONTAINER [Suspect]
     Indication: PERITONEAL DIALYSIS
     Route: 033
     Dates: start: 20020201
  4. PHYSIOSOL IN PLASTIC CONTAINER [Suspect]
     Indication: RENAL FAILURE
     Route: 033
     Dates: start: 20020201
  5. PHYSIOSOL IN PLASTIC CONTAINER [Suspect]
     Indication: GLOMERULONEPHRITIS PROLIFERATIVE
     Route: 033
     Dates: start: 20020201
  6. PHYSIOSOL IN PLASTIC CONTAINER [Suspect]
     Route: 033
     Dates: start: 20020411
  7. PHYSIOSOL IN PLASTIC CONTAINER [Suspect]
     Route: 033
     Dates: start: 20020411
  8. PHYSIOSOL IN PLASTIC CONTAINER [Suspect]
     Route: 033
     Dates: start: 20020411
  9. PHYSIOSOL IN PLASTIC CONTAINER [Suspect]
     Route: 033
  10. PHYSIOSOL IN PLASTIC CONTAINER [Suspect]
     Route: 033
  11. PHYSIOSOL IN PLASTIC CONTAINER [Suspect]
     Route: 033
  12. ENALAPRIL MALEATE [Concomitant]
  13. CYNT ^BEIERSDORF^ [Concomitant]
  14. ARANESP [Concomitant]
  15. VIGANTOL ^BAYER^ [Concomitant]
  16. ACETYLSALICYLIC ACID SRT [Concomitant]
  17. DILTAHEXAL [Concomitant]
  18. OMEPRAZOLE [Concomitant]
  19. PHOSPHOSORB [Concomitant]
  20. BONDIOL [Concomitant]

REACTIONS (2)
  - ILEUS [None]
  - SCLEROSING ENCAPSULATING PERITONITIS [None]
